FAERS Safety Report 22034789 (Version 2)
Quarter: 2023Q2

REPORT INFORMATION
  Report Type: Spontaneous
  Country: JP (occurrence: JP)
  Receive Date: 20230224
  Receipt Date: 20230501
  Transmission Date: 20230722
  Serious: Yes (Hospitalization, Other)
  Sender: FDA-Public Use
  Company Number: JP-SA-2023SA061985

PATIENT
  Age: 71 Year
  Sex: Male

DRUGS (2)
  1. OXALIPLATIN [Suspect]
     Active Substance: OXALIPLATIN
     Indication: Rectal cancer
     Dosage: UNK UNK, QCY
     Route: 041
  2. CAPECITABINE [Concomitant]
     Active Substance: CAPECITABINE
     Indication: Rectal cancer
     Dosage: UNK

REACTIONS (8)
  - Hepatic cirrhosis [Recovered/Resolved]
  - Ascites [Recovered/Resolved]
  - Splenic infarction [Recovering/Resolving]
  - Gastric varices haemorrhage [Recovering/Resolving]
  - Faeces discoloured [Recovering/Resolving]
  - Anaemia [Recovering/Resolving]
  - Gastritis erosive [Recovering/Resolving]
  - Venoocclusive liver disease [Recovering/Resolving]
